FAERS Safety Report 6370784-4 (Version None)
Quarter: 2009Q3

REPORT INFORMATION
  Report Type: 
  Country: None (occurrence: None)
  Receive Date: 20090923
  Receipt Date: 20070529
  Transmission Date: 20100115
  Serious: Yes (Other)
  Sender: FDA-Public Use
  Company Number: US-ASTRAZENECA-2006UW24480

PATIENT
  Age: 36 Year
  Sex: Male
  Weight: 134.3 kg

DRUGS (23)
  1. SEROQUEL [Suspect]
     Indication: SCHIZOPHRENIA
     Dosage: 200MG TO 450MG (FLUCTUATING)
     Route: 048
     Dates: start: 20000111
  2. SEROQUEL [Suspect]
     Route: 048
  3. ZYPREXA [Concomitant]
     Route: 048
     Dates: start: 20020402
  4. LISINOPRIL [Concomitant]
     Indication: HYPERTENSION
     Route: 048
     Dates: start: 20040923
  5. TRICOR [Concomitant]
     Indication: HYPERCHOLESTEROLAEMIA
     Route: 048
     Dates: start: 20020916
  6. DEPAKOTE [Concomitant]
     Indication: MOOD SWINGS
     Dosage: 500MG TAB, TWO TABS AT NIGHT
     Route: 048
     Dates: start: 20020227
  7. DEPAKOTE [Concomitant]
     Indication: SCHIZOPHRENIA
     Dosage: 500MG TAB, TWO TABS AT NIGHT
     Route: 048
     Dates: start: 20020227
  8. ATIVAN [Concomitant]
     Dosage: 1MG TAB, ONE TAB IN MORNING, 1.5 TAB AT NIGHT
     Route: 048
     Dates: start: 20001013
  9. COREG [Concomitant]
     Route: 048
     Dates: start: 20070429
  10. ABILIFY [Concomitant]
     Route: 048
     Dates: start: 20070429
  11. LOTREL [Concomitant]
     Dosage: 5/20 MG, DAILY
     Route: 048
     Dates: start: 20070429
  12. HEPARIN [Concomitant]
     Indication: DEEP VEIN THROMBOSIS
     Dosage: 5000 UNITS , THREE TIMES A DAY
     Route: 058
     Dates: start: 20050616
  13. HYDROCHLOROTHIAZIDE [Concomitant]
     Route: 048
     Dates: start: 20011018
  14. BENICAR [Concomitant]
     Route: 048
     Dates: start: 20060516
  15. PREDNISONE [Concomitant]
     Route: 048
     Dates: start: 20070415
  16. LIPITOR [Concomitant]
     Route: 048
     Dates: start: 20050726
  17. METOPROLOL TARTRATE [Concomitant]
     Route: 048
     Dates: start: 20050928
  18. KLONOPIN [Concomitant]
     Route: 048
     Dates: start: 20020227
  19. WELLBUTRIN XL [Concomitant]
     Route: 048
     Dates: start: 20031025
  20. RISPERDAL [Concomitant]
     Dosage: 2MG TO 4 MG, DAILY
     Route: 048
     Dates: start: 20000111
  21. ALTACE [Concomitant]
     Route: 048
     Dates: start: 20021030
  22. CLARINEX [Concomitant]
     Route: 048
     Dates: start: 20021112
  23. COUMADIN [Concomitant]
     Dosage: 4MG, DAILY INR
     Dates: start: 20050616

REACTIONS (3)
  - DIABETES MELLITUS [None]
  - DIABETES MELLITUS INADEQUATE CONTROL [None]
  - TYPE 2 DIABETES MELLITUS [None]
